FAERS Safety Report 17493327 (Version 1)
Quarter: 2020Q1

REPORT INFORMATION
  Report Type: Spontaneous
  Country: US (occurrence: US)
  Receive Date: 20200303
  Receipt Date: 20200303
  Transmission Date: 20200409
  Serious: No
  Sender: FDA-Public Use
  Company Number: US-AMNEAL PHARMACEUTICALS-2019-IPXL-00678

PATIENT
  Age: 72 Year
  Sex: Male
  Weight: 129 kg

DRUGS (2)
  1. RYTARY [Suspect]
     Active Substance: CARBIDOPA\LEVODOPA
     Dosage: 3 DOSAGE FORM, 3 /DAY
     Route: 065
     Dates: start: 201903
  2. RYTARY [Suspect]
     Active Substance: CARBIDOPA\LEVODOPA
     Indication: PARKINSON^S DISEASE
     Dosage: 1 DOSAGE FORM, 3 /DAY
     Route: 065
     Dates: start: 201902, end: 2019

REACTIONS (5)
  - Tremor [Not Recovered/Not Resolved]
  - Therapeutic product effect delayed [Unknown]
  - Incorrect dose administered [Unknown]
  - Therapy non-responder [Unknown]
  - Product communication issue [Unknown]

NARRATIVE: CASE EVENT DATE: 201902
